FAERS Safety Report 17159211 (Version 1)
Quarter: 2019Q4

REPORT INFORMATION
  Report Type: Spontaneous
  Country: US (occurrence: US)
  Receive Date: 20191216
  Receipt Date: 20191216
  Transmission Date: 20200122
  Serious: Yes (Hospitalization)
  Sender: FDA-Public Use
  Company Number: US-HORIZON-PRE-0561-2019

PATIENT
  Sex: Male

DRUGS (3)
  1. CORTIMOXAZOLE [Concomitant]
     Indication: PROPHYLAXIS
  2. PREDNISONE. [Suspect]
     Active Substance: PREDNISONE
     Indication: ENDOTHELIOMATOSIS
     Dosage: 0.5MG/KG/DAY
     Route: 048
  3. OCTREOTIDE. [Concomitant]
     Active Substance: OCTREOTIDE
     Indication: ENDOTHELIOMATOSIS
     Dosage: 1?G/KG/H

REACTIONS (3)
  - Rib fracture [Recovered/Resolved]
  - Growth retardation [Recovered/Resolved]
  - Osteopenia [Unknown]
